FAERS Safety Report 5444849-5 (Version None)
Quarter: 2007Q3

REPORT INFORMATION
  Report Type: 
  Country: None (occurrence: None)
  Receive Date: 20070906
  Receipt Date: 20070404
  Transmission Date: 20080115
  Serious: No
  Sender: FDA-Public Use
  Company Number: A0645978A

PATIENT
  Age: 64 Year
  Sex: Female

DRUGS (10)
  1. REQUIP [Suspect]
     Indication: RESTLESS LEGS SYNDROME
     Dosage: 5MG PER DAY
     Route: 048
     Dates: start: 20070101
  2. TYLENOL W/ CODEINE [Concomitant]
  3. LISINOPRIL [Concomitant]
  4. HYDROCHLOROTHIAZIDE [Concomitant]
  5. VERAPAMIL [Concomitant]
  6. GLYBURIDE AND METFORMIN HCL [Concomitant]
  7. LIPITOR [Concomitant]
  8. RANITIDINE [Concomitant]
  9. KLOR-CON [Concomitant]
  10. LANTUS [Concomitant]

REACTIONS (4)
  - DRUG ADMINISTRATION ERROR [None]
  - ILL-DEFINED DISORDER [None]
  - OVERDOSE [None]
  - VOMITING [None]
